FAERS Safety Report 8118189-X (Version None)
Quarter: 2012Q1

REPORT INFORMATION
  Report Type: 
  Country: None (occurrence: None)
  Receive Date: 20120202
  Receipt Date: 20120117
  Transmission Date: 20120608
  Serious: Yes (Hospitalization)
  Sender: FDA-Public Use
  Company Number: FK201200220

PATIENT
  Age: 49 Year
  Sex: Male

DRUGS (3)
  1. EPIRUBICIN (EPIRUBICIN) (EPIRUBICIN) [Concomitant]
  2. FLUOROURACIL [Suspect]
     Indication: ADENOCARCINOMA
  3. CISPLATIN [Concomitant]

REACTIONS (12)
  - SKIN TEST POSITIVE [None]
  - VASOSPASM [None]
  - BLOOD CREATINE PHOSPHOKINASE INCREASED [None]
  - CHEST PAIN [None]
  - EJECTION FRACTION DECREASED [None]
  - ARTERIOSCLEROSIS CORONARY ARTERY [None]
  - PRURITUS GENERALISED [None]
  - KOUNIS SYNDROME [None]
  - URTICARIA [None]
  - ELECTROCARDIOGRAM ST SEGMENT ELEVATION [None]
  - TROPONIN INCREASED [None]
  - BLOOD CREATINE PHOSPHOKINASE MB INCREASED [None]
